FAERS Safety Report 17187473 (Version 1)
Quarter: 2019Q4

REPORT INFORMATION
  Report Type: Spontaneous
  Country: GB (occurrence: GB)
  Receive Date: 20191220
  Receipt Date: 20191220
  Transmission Date: 20200122
  Serious: Yes (Other)
  Sender: FDA-Public Use
  Company Number: GB-AUROBINDO-AUR-APL-2019-106129

PATIENT
  Age: 39 Year
  Sex: Female
  Weight: 70.3 kg

DRUGS (2)
  1. SERTRALINE [Suspect]
     Active Substance: SERTRALINE HYDROCHLORIDE
     Indication: ANXIETY
     Dosage: UNK (INCREASED DOSE 5 WEEKS AGO THIS WHEN SIDE EFFECT STARTED)
     Route: 048
     Dates: start: 2010
  2. PROPRANOLOL [Concomitant]
     Active Substance: PROPRANOLOL HYDROCHLORIDE
     Indication: PRODUCT USED FOR UNKNOWN INDICATION
     Dosage: UNK
     Route: 065

REACTIONS (5)
  - Hypoacusis [Unknown]
  - Tinnitus [Not Recovered/Not Resolved]
  - Hyperacusis [Not Recovered/Not Resolved]
  - Headache [Not Recovered/Not Resolved]
  - Balance disorder [Unknown]

NARRATIVE: CASE EVENT DATE: 20191026
